FAERS Safety Report 6288605-7 (Version None)
Quarter: 2009Q3

REPORT INFORMATION
  Report Type: 
  Country: None (occurrence: None)
  Receive Date: 20090729
  Receipt Date: 20090722
  Transmission Date: 20100115
  Serious: Yes (Hospitalization, Other)
  Sender: FDA-Public Use
  Company Number: US-ALEXION-A200900046

PATIENT
  Sex: Female

DRUGS (10)
  1. SOLIRIS [Suspect]
     Indication: PAROXYSMAL NOCTURNAL HAEMOGLOBINURIA
     Dosage: 600 G, QW
     Route: 042
     Dates: start: 20070628, end: 20070701
  2. SOLIRIS [Suspect]
     Dosage: 900 MG, Q2W
     Route: 042
     Dates: start: 20070726
  3. LEXAPRO [Concomitant]
     Dosage: 10 MG, QD
     Dates: start: 20070522
  4. URSODIOL [Concomitant]
     Dosage: 300 MG, TID
  5. LEVOTHYROXINE SODIUM [Concomitant]
     Dosage: 25 UG, QD
  6. PHOSLO [Concomitant]
     Dosage: 667 MG, 2 THREE TIMES PER DAY
  7. ASPIRIN [Concomitant]
     Dosage: 325 MG, UNK
  8. FOLIC ACID [Concomitant]
     Dosage: 400 MG, QD
  9. VITAMIN B6 [Concomitant]
     Dosage: 100 MG, QD
  10. VITAMIN C                          /00008001/ [Concomitant]
     Dosage: 500 MG, BID

REACTIONS (4)
  - GASTROINTESTINAL HAEMORRHAGE [None]
  - HAEMOGLOBIN DECREASED [None]
  - UPPER RESPIRATORY TRACT INFECTION [None]
  - VERTIGO [None]
